FAERS Safety Report 17554445 (Version 7)
Quarter: 2020Q3

REPORT INFORMATION
  Report Type: Spontaneous
  Country: US (occurrence: US)
  Receive Date: 20200318
  Receipt Date: 20200911
  Transmission Date: 20201102
  Serious: Yes (Hospitalization)
  Sender: FDA-Public Use
  Company Number: US-BIOGEN-2020BI00849405

PATIENT
  Age: 47 Year
  Sex: Female

DRUGS (3)
  1. TYSABRI [Suspect]
     Active Substance: NATALIZUMAB
     Route: 042
     Dates: start: 20111027
  2. TYSABRI [Suspect]
     Active Substance: NATALIZUMAB
     Indication: MULTIPLE SCLEROSIS
     Dosage: INFUSED OVER 1 HOUR
     Route: 042
  3. TYSABRI [Suspect]
     Active Substance: NATALIZUMAB
     Route: 065
     Dates: start: 20111021

REACTIONS (24)
  - Transient ischaemic attack [Unknown]
  - Therapeutic product effect decreased [Unknown]
  - Hemiparesis [Not Recovered/Not Resolved]
  - Confusional state [Unknown]
  - Visual impairment [Unknown]
  - Musculoskeletal discomfort [Unknown]
  - Aphasia [Unknown]
  - Illness [Recovered/Resolved]
  - Multiple sclerosis [Unknown]
  - Vision blurred [Unknown]
  - Multiple sclerosis relapse [Unknown]
  - Stress [Unknown]
  - Pharyngitis streptococcal [Unknown]
  - Nervousness [Unknown]
  - Anxiety [Unknown]
  - Gait disturbance [Unknown]
  - Influenza [Unknown]
  - Cerebrovascular accident [Unknown]
  - Agitation [Unknown]
  - Frustration tolerance decreased [Unknown]
  - Discomfort [Unknown]
  - Coagulopathy [Unknown]
  - Product dose omission issue [Recovered/Resolved]
  - Hypoaesthesia [Unknown]

NARRATIVE: CASE EVENT DATE: 2017
